FAERS Safety Report 4812078-1 (Version None)
Quarter: 2005Q4

REPORT INFORMATION
  Report Type: 
  Country: None (occurrence: None)
  Receive Date: 20051028
  Receipt Date: 20051019
  Transmission Date: 20060501
  Serious: Yes (Hospitalization)
  Sender: FDA-Public Use
  Company Number: 2005UW15717

PATIENT
  Sex: Female

DRUGS (3)
  1. SEROQUEL [Suspect]
     Indication: TRAUMATIC BRAIN INJURY
     Route: 048
     Dates: start: 20041001
  2. SULINDAC [Concomitant]
  3. ARTANE [Concomitant]

REACTIONS (1)
  - RENAL FAILURE [None]
